FAERS Safety Report 7485798-0 (Version None)
Quarter: 2011Q2

REPORT INFORMATION
  Report Type: 
  Country: None (occurrence: None)
  Receive Date: 20110517
  Receipt Date: 20110510
  Transmission Date: 20111010
  Serious: Yes (Death)
  Sender: FDA-Public Use
  Company Number: CH-ABBOTT-11P-151-0713542-00

PATIENT
  Sex: Female

DRUGS (7)
  1. FOSAVANCE [Concomitant]
     Indication: PRODUCT USED FOR UNKNOWN INDICATION
  2. SYMBICORT [Concomitant]
     Indication: PRODUCT USED FOR UNKNOWN INDICATION
  3. DICLOFENAC SODIUM [Concomitant]
     Indication: PRODUCT USED FOR UNKNOWN INDICATION
  4. ACIDUM FOLICUM [Concomitant]
     Indication: PRODUCT USED FOR UNKNOWN INDICATION
  5. PANTOPRAZOLE [Concomitant]
     Indication: PRODUCT USED FOR UNKNOWN INDICATION
  6. HUMIRA [Suspect]
     Indication: RHEUMATOID ARTHRITIS
     Dates: start: 20060301, end: 20101101
  7. METHOTREXATE [Concomitant]
     Indication: RHEUMATOID ARTHRITIS

REACTIONS (1)
  - DEATH [None]
